FAERS Safety Report 7868177-3 (Version None)
Quarter: 2011Q4

REPORT INFORMATION
  Report Type: 
  Country: None (occurrence: None)
  Receive Date: 20111028
  Receipt Date: 20111023
  Transmission Date: 20120403
  Serious: Yes (Disabling)
  Sender: FDA-Public Use
  Company Number: US-ABBOTT-11P-163-0867695-00

PATIENT
  Sex: Female

DRUGS (1)
  1. LUPRON DEPOT [Suspect]
     Indication: PRODUCT USED FOR UNKNOWN INDICATION

REACTIONS (9)
  - AUTOIMMUNE DISORDER [None]
  - METAMORPHOPSIA [None]
  - EMOTIONAL DISTRESS [None]
  - MEMORY IMPAIRMENT [None]
  - QUALITY OF LIFE DECREASED [None]
  - MYALGIA [None]
  - DEPRESSION [None]
  - ARTHRALGIA [None]
  - OVERWEIGHT [None]
